FAERS Safety Report 5567804-3 (Version None)
Quarter: 2007Q4

REPORT INFORMATION
  Report Type: 
  Country: None (occurrence: None)
  Receive Date: 20071217
  Receipt Date: 20071210
  Transmission Date: 20080405
  Serious: Yes (Other)
  Sender: FDA-Public Use
  Company Number: 2007SP024677

PATIENT
  Age: 43 Year
  Sex: Female

DRUGS (4)
  1. REBETOL [Suspect]
     Indication: HEPATITIS C
     Dosage: PO
     Route: 048
     Dates: start: 19990101, end: 19990101
  2. REBETOL [Suspect]
     Indication: HEPATITIS C
     Dosage: PO
     Route: 048
     Dates: start: 20071027
  3. INTRON A [Suspect]
     Indication: HEPATITIS C
     Dates: start: 19990101, end: 19990101
  4. INTRON A [Suspect]
     Indication: HEPATITIS C
     Dates: start: 20071027

REACTIONS (4)
  - BASEDOW'S DISEASE [None]
  - DRUG INEFFECTIVE [None]
  - HEPATIC CIRRHOSIS [None]
  - SUICIDE ATTEMPT [None]
